FAERS Safety Report 25690210 (Version 2)
Quarter: 2025Q4

REPORT INFORMATION
  Report Type: Spontaneous
  Country: US (occurrence: US)
  Receive Date: 20250818
  Receipt Date: 20251009
  Transmission Date: 20260117
  Serious: No
  Sender: BRISTOL-MYERS SQUIBB COMPANY
  Company Number: US-BRISTOL-MYERS SQUIBB COMPANY-2025-113977

PATIENT
  Age: 67 Year
  Sex: Male
  Weight: 118.39 kg

DRUGS (1)
  1. POMALYST [Suspect]
     Active Substance: POMALIDOMIDE
     Indication: Plasma cell myeloma

REACTIONS (2)
  - Back pain [Not Recovered/Not Resolved]
  - Nerve compression [Recovering/Resolving]

NARRATIVE: CASE EVENT DATE: 20251008
